FAERS Safety Report 23062674 (Version 2)
Quarter: 2023Q4

REPORT INFORMATION
  Report Type: Spontaneous
  Country: CA (occurrence: CA)
  Receive Date: 20231013
  Receipt Date: 20231204
  Transmission Date: 20240110
  Serious: Yes (Other)
  Sender: FDA-Public Use
  Company Number: CA-PFIZER INC-202300319604

PATIENT
  Age: 56 Year
  Sex: Female

DRUGS (1)
  1. ABRILADA [Suspect]
     Active Substance: ADALIMUMAB-AFZB
     Indication: Crohn^s disease
     Dosage: 160MG WEEK0, 80MG WEEK2, THEN 40MG Q2WEEKS - PREFILLED PEN
     Route: 065
     Dates: start: 20220914

REACTIONS (2)
  - Large intestine polyp [Unknown]
  - Rectal polyp [Unknown]

NARRATIVE: CASE EVENT DATE: 20230101
